FAERS Safety Report 6083402-X (Version None)
Quarter: 2009Q1

REPORT INFORMATION
  Report Type: 
  Country: None (occurrence: None)
  Receive Date: 20090217
  Receipt Date: 20090209
  Transmission Date: 20090719
  Serious: Yes (Other)
  Sender: FDA-Public Use
  Company Number: 2009SP003149

PATIENT
  Sex: Female

DRUGS (6)
  1. MIRALAX [Suspect]
     Indication: DRUG USE FOR UNKNOWN INDICATION
     Dosage: UNK; PO
     Route: 048
  2. IRON [Suspect]
     Indication: DRUG USE FOR UNKNOWN INDICATION
     Dosage: UNK
  3. SYNTHROID [Concomitant]
  4. QUINAPRIL [Concomitant]
  5. VITAMIN D [Concomitant]
  6. HEMRIL [Concomitant]

REACTIONS (1)
  - FAECES DISCOLOURED [None]
